FAERS Safety Report 6690758-3 (Version None)
Quarter: 2010Q2

REPORT INFORMATION
  Report Type: 
  Country: None (occurrence: None)
  Receive Date: 20100421
  Receipt Date: 20100412
  Transmission Date: 20101027
  Serious: Yes (Other)
  Sender: FDA-Public Use
  Company Number: FR-PFIZER INC-2010045529

PATIENT
  Age: 65 Year
  Sex: Female

DRUGS (2)
  1. ALDACTONE [Suspect]
     Indication: HYPERTENSION
     Dosage: 50 MG,DAILY
     Dates: start: 20090301
  2. AMLOR [Suspect]
     Indication: HYPERTENSION
     Dosage: UNK
     Dates: start: 20100301, end: 20100401

REACTIONS (4)
  - PALPITATIONS [None]
  - PARAESTHESIA [None]
  - TREMOR [None]
  - VERTIGO [None]
